FAERS Safety Report 14764834 (Version 2)
Quarter: 2018Q3

REPORT INFORMATION
  Report Type: Spontaneous
  Country: US (occurrence: US)
  Receive Date: 20180416
  Receipt Date: 20180718
  Transmission Date: 20181010
  Serious: Yes (Hospitalization, Other)
  Sender: FDA-Public Use
  Company Number: US-ALLERGAN-1820583US

PATIENT
  Age: 55 Year
  Sex: Female
  Weight: 110.2 kg

DRUGS (12)
  1. MAGNESIUM OXIDE. [Concomitant]
     Active Substance: MAGNESIUM OXIDE
     Dosage: 420 MG, QD
     Route: 048
  2. LASIX [Concomitant]
     Active Substance: FUROSEMIDE
     Dosage: 40 MG, QAM
     Route: 048
  3. LYRICA [Concomitant]
     Active Substance: PREGABALIN
     Dosage: 50 MG, Q6HR
     Route: 048
  4. BIOTIN [Concomitant]
     Active Substance: BIOTIN
     Dosage: 1 DF, QD
     Route: 048
  5. NORVASC [Concomitant]
     Active Substance: AMLODIPINE BESYLATE
     Dosage: 5 MG, QD
     Route: 048
  6. CYMBALTA [Concomitant]
     Active Substance: DULOXETINE HYDROCHLORIDE
     Dosage: 60 MG, QAM
     Route: 048
  7. VIBERZI [Suspect]
     Active Substance: ELUXADOLINE
     Indication: IRRITABLE BOWEL SYNDROME
     Dosage: 75 MG, SINGLE
     Route: 065
     Dates: start: 20160413, end: 20160413
  8. FERROUS SULFATE. [Concomitant]
     Active Substance: FERROUS SULFATE
     Dosage: 325 MG, QD
     Route: 048
  9. VITAMIN D [Concomitant]
     Active Substance: CHOLECALCIFEROL
     Dosage: 1 DF, QD
     Route: 048
  10. COLCHICINE. [Concomitant]
     Active Substance: COLCHICINE
     Dosage: 0.6 MG, QD
     Route: 048
  11. TRAMADOL. [Concomitant]
     Active Substance: TRAMADOL
     Dosage: 50 MG, Q6HR (AS NEEDED)
     Route: 048
  12. ZOFRAN [Concomitant]
     Active Substance: ONDANSETRON HYDROCHLORIDE
     Dosage: 4 MG, Q6HR (AS NEEDED)
     Route: 048

REACTIONS (41)
  - Acute kidney injury [Unknown]
  - Contraindicated product administered [Unknown]
  - Hypertension [Unknown]
  - Hiatus hernia [Unknown]
  - Abdominal pain upper [Not Recovered/Not Resolved]
  - Vomiting [Unknown]
  - Mood altered [Not Recovered/Not Resolved]
  - Amnesia [Unknown]
  - Depression [Unknown]
  - Migraine [Unknown]
  - Dyspnoea [Unknown]
  - Drug hypersensitivity [Unknown]
  - Abdominal distension [Unknown]
  - Pseudocyst [Unknown]
  - Hypokalaemia [Unknown]
  - Parkinson^s disease [Unknown]
  - Dyspepsia [Unknown]
  - Respiratory failure [Unknown]
  - Pain [Not Recovered/Not Resolved]
  - Back disorder [Unknown]
  - Systemic lupus erythematosus [Unknown]
  - Alopecia [Not Recovered/Not Resolved]
  - Product use complaint [Unknown]
  - Pancreatitis acute [Recovering/Resolving]
  - Fear of disease [Not Recovered/Not Resolved]
  - Arthritis [Unknown]
  - Sleep apnoea syndrome [Unknown]
  - Fall [Unknown]
  - Gastrooesophageal reflux disease [Unknown]
  - Nausea [Not Recovered/Not Resolved]
  - Pancreatitis relapsing [Recovering/Resolving]
  - Hypomagnesaemia [Unknown]
  - Iron deficiency anaemia [Unknown]
  - Craniocerebral injury [Unknown]
  - Myocardial infarction [Unknown]
  - Hepatic function abnormal [Unknown]
  - Abdominal discomfort [Unknown]
  - Anxiety [Not Recovered/Not Resolved]
  - Mental disorder [Unknown]
  - Transaminases increased [Unknown]
  - Renal failure [Unknown]

NARRATIVE: CASE EVENT DATE: 201604
